FAERS Safety Report 7104065-8 (Version None)
Quarter: 2010Q4

REPORT INFORMATION
  Report Type: 
  Country: None (occurrence: None)
  Receive Date: 20101115
  Receipt Date: 20100519
  Transmission Date: 20110411
  Serious: No
  Sender: FDA-Public Use
  Company Number: US-ALLERGAN-1006587US

PATIENT
  Age: 53 Year
  Sex: Female

DRUGS (5)
  1. BOTOX COSMETIC [Suspect]
     Indication: SKIN WRINKLING
     Dosage: UNK
     Route: 030
     Dates: start: 20060101, end: 20060101
  2. BOTOX COSMETIC [Suspect]
     Dosage: UNK
     Route: 030
     Dates: start: 20090430, end: 20090430
  3. BOTOX COSMETIC [Suspect]
     Dosage: 43 UNITS, SINGLE
     Route: 030
     Dates: start: 20100508, end: 20100508
  4. THYROID THERAPY [Concomitant]
     Indication: HYPOTHYROIDISM
  5. FOSAMAX [Concomitant]

REACTIONS (3)
  - INSOMNIA [None]
  - RASH PRURITIC [None]
  - URTICARIA [None]
